FAERS Safety Report 7575081-7 (Version None)
Quarter: 2011Q2

REPORT INFORMATION
  Report Type: 
  Country: None (occurrence: None)
  Receive Date: 20110627
  Receipt Date: 20110617
  Transmission Date: 20111010
  Serious: Yes (Hospitalization)
  Sender: FDA-Public Use
  Company Number: FR-ASTRAZENECA-2011SE37276

PATIENT
  Age: 69 Year
  Sex: Female

DRUGS (13)
  1. ALLOPURINOL [Suspect]
     Route: 048
     Dates: end: 20110414
  2. ARIMIDEX [Concomitant]
     Route: 048
  3. CRESTOR [Suspect]
     Indication: CARDIOVASCULAR EVENT PROPHYLAXIS
     Route: 048
     Dates: start: 20110303, end: 20110415
  4. LASIX [Suspect]
     Route: 048
     Dates: start: 20110322
  5. SPIRIVA [Concomitant]
  6. IPRATROPIUM BROMIDE [Concomitant]
  7. NEBIVOLOL HCL [Concomitant]
     Route: 048
  8. RAMIPRIL [Suspect]
     Indication: MYOCARDIAL INFARCTION
     Route: 048
     Dates: start: 20110211, end: 20110414
  9. PLAVIX [Suspect]
     Route: 048
     Dates: end: 20110415
  10. NEXIUM [Concomitant]
     Route: 048
  11. LASIX [Suspect]
     Indication: MYOCARDIAL INFARCTION
     Route: 048
     Dates: start: 20110211, end: 20110412
  12. LOVENOX [Concomitant]
     Route: 058
  13. OXEOL [Concomitant]
     Route: 048

REACTIONS (7)
  - MUCOSAL INFLAMMATION [None]
  - CONJUNCTIVITIS [None]
  - RASH MACULAR [None]
  - PRURITUS GENERALISED [None]
  - SKIN EXFOLIATION [None]
  - NIKOLSKY'S SIGN [None]
  - RASH ERYTHEMATOUS [None]
